FAERS Safety Report 26080348 (Version 1)
Quarter: 2025Q4

REPORT INFORMATION
  Report Type: Spontaneous
  Country: US (occurrence: US)
  Receive Date: 20251124
  Receipt Date: 20251124
  Transmission Date: 20260118
  Serious: No
  Sender: PRINSTON PHARMACEUTICAL
  Company Number: US-PRINSTON PHARMACEUTICAL INC.-2025PRN00235

PATIENT
  Sex: Female

DRUGS (1)
  1. METHOCARBAMOL [Suspect]
     Active Substance: METHOCARBAMOL
     Indication: Back pain
     Dosage: 500 MG, TWICE DAILY

REACTIONS (4)
  - Drug ineffective [Unknown]
  - Muscle spasms [Unknown]
  - Movement disorder [Unknown]
  - Back pain [Unknown]
